FAERS Safety Report 10413677 (Version 1)
Quarter: 2014Q3

REPORT INFORMATION
  Report Type: Spontaneous
  Country: TR (occurrence: None)
  Receive Date: 20140825
  Receipt Date: 20140825
  Transmission Date: 20150326
  Serious: Yes (Other)
  Sender: FDA-Public Use
  Company Number: 2457049

PATIENT
  Age: 13 Year
  Sex: Male

DRUGS (5)
  1. METHOTREXATE [Suspect]
     Active Substance: METHOTREXATE
     Indication: ACUTE LYMPHOCYTIC LEUKAEMIA
     Dosage: 12 MG/M 2 MILLIGRAM (S) /SQ. METER
     Route: 037
  2. VINCRISTINE [Concomitant]
     Active Substance: VINCRISTINE
  3. PREDNISOLONE. [Concomitant]
     Active Substance: PREDNISOLONE
  4. L-ASPARAGINASE [Concomitant]
     Active Substance: ASPARAGINASE
  5. DAUNORUBICIN [Concomitant]
     Active Substance: DAUNORUBICIN

REACTIONS (7)
  - Visual acuity reduced [None]
  - Blood sodium decreased [None]
  - Posterior reversible encephalopathy syndrome [None]
  - Inappropriate antidiuretic hormone secretion [None]
  - Cerebellar atrophy [None]
  - Hallucination [None]
  - Cerebral atrophy [None]
